FAERS Safety Report 6897605-5 (Version None)
Quarter: 2010Q3

REPORT INFORMATION
  Report Type: 
  Country: None (occurrence: None)
  Receive Date: 20100802
  Receipt Date: 20070626
  Transmission Date: 20110219
  Serious: No
  Sender: FDA-Public Use
  Company Number: US-PFIZER INC-2007053019

PATIENT
  Sex: Female

DRUGS (2)
  1. LYRICA [Suspect]
  2. DRUG, UNSPECIFIED [Concomitant]

REACTIONS (4)
  - CONSTIPATION [None]
  - LIMB INJURY [None]
  - PSORIASIS [None]
  - SOMNOLENCE [None]
